FAERS Safety Report 4820382-6 (Version None)
Quarter: 2005Q4

REPORT INFORMATION
  Report Type: 
  Country: None (occurrence: None)
  Receive Date: 20051014
  Receipt Date: 20050906
  Transmission Date: 20060501
  Serious: No
  Sender: FDA-Public Use
  Company Number: 2005SP002655

PATIENT
  Age: 50 Year
  Sex: Male

DRUGS (1)
  1. LUNESTA [Suspect]
     Indication: INSOMNIA
     Dosage: 2 MG, QH;, ORAL
     Route: 048
     Dates: start: 20050101, end: 20050101

REACTIONS (1)
  - DYSGEUSIA [None]
